FAERS Safety Report 5057606-9 (Version None)
Quarter: 2006Q3

REPORT INFORMATION
  Report Type: 
  Country: None (occurrence: None)
  Receive Date: 20060721
  Receipt Date: 20051220
  Transmission Date: 20061208
  Serious: No
  Sender: FDA-Public Use
  Company Number: US-GLAXOSMITHKLINE-A0586458A

PATIENT
  Age: 45 Year
  Sex: Male

DRUGS (7)
  1. AVANDIA [Suspect]
     Dosage: 8MG PER DAY
     Route: 048
     Dates: start: 20051213
  2. REQUIP [Suspect]
     Indication: RESTLESS LEGS SYNDROME
     Dosage: .5MG PER DAY
     Route: 048
     Dates: start: 20051215
  3. WATER PILL [Concomitant]
  4. DIOVAN [Concomitant]
  5. METFORMIN [Concomitant]
  6. GLUCOPHAGE [Concomitant]
  7. LIPITOR [Concomitant]

REACTIONS (5)
  - FACIAL PAIN [None]
  - FATIGUE [None]
  - HEADACHE [None]
  - INSOMNIA [None]
  - MYALGIA [None]
